FAERS Safety Report 6232043-X (Version None)
Quarter: 2009Q2

REPORT INFORMATION
  Report Type: 
  Country: None (occurrence: None)
  Receive Date: 20090612
  Receipt Date: 20090529
  Transmission Date: 20091009
  Serious: Yes (Hospitalization)
  Sender: FDA-Public Use
  Company Number: 2009AL003691

PATIENT
  Age: 79 Year
  Sex: Female

DRUGS (8)
  1. DIGOXIN [Suspect]
     Indication: ARRHYTHMIA
     Dosage: DAILY, PO
     Route: 048
  2. MELPHALAN HYDROCHLORIDE [Concomitant]
  3. PREDNISONE [Concomitant]
  4. PAMIDRONATE DISODIUM [Concomitant]
  5. ALKERAN [Concomitant]
  6. CORTANCYL [Concomitant]
  7. THALIDOMIDE [Concomitant]
  8. LEVOTHYROXINE [Concomitant]

REACTIONS (1)
  - CONSTIPATION [None]
